FAERS Safety Report 22956369 (Version 3)
Quarter: 2024Q1

REPORT INFORMATION
  Report Type: Other
  Country: US (occurrence: None)
  Receive Date: 20230919
  Receipt Date: 20240322
  Transmission Date: 20240410
  Serious: No
  Sender: FDA-Public Use
  Company Number: US-ROCHE-3422852

PATIENT
  Age: 31 Year
  Sex: Female
  Weight: 65 kg

DRUGS (8)
  1. OCREVUS [Suspect]
     Active Substance: OCRELIZUMAB
     Indication: Multiple sclerosis relapse
     Dosage: FIRST 2, 300 MG INFUSIONS, THE PATIENT^S SECOND 1/2 DOSE WAS COMPLETED?ON 01-SEP-2023.SECOND HALF DO
     Route: 042
     Dates: start: 20230814
  2. RITUXAN [Suspect]
     Active Substance: RITUXIMAB
     Indication: Multiple sclerosis
     Dosage: LAST DOSE OF RITUXAN WAS 30/DEC/2022, 10 MG/ML
     Route: 042
     Dates: start: 201912, end: 202212
  3. VITAMIN B COMPLEX [Concomitant]
     Active Substance: CYANOCOBALAMIN\DEXPANTHENOL\NIACINAMIDE\PYRIDOXINE HYDROCHLORIDE\RIBOFLAVIN 5^-PHOSPHATE SODIUM\THIA
  4. TOPIRAMATE [Concomitant]
     Active Substance: TOPIRAMATE
  5. NAPROXEN [Concomitant]
     Active Substance: NAPROXEN
  6. ERGOCALCIFEROL [Concomitant]
     Active Substance: ERGOCALCIFEROL
  7. CYANOCOBALAMIN [Concomitant]
     Active Substance: CYANOCOBALAMIN
  8. PAXLOVID [Concomitant]
     Active Substance: NIRMATRELVIR\RITONAVIR

REACTIONS (8)
  - Pain [Not Recovered/Not Resolved]
  - Chills [Not Recovered/Not Resolved]
  - Chest pain [Not Recovered/Not Resolved]
  - Insomnia [Unknown]
  - COVID-19 [Not Recovered/Not Resolved]
  - Acne [Not Recovered/Not Resolved]
  - Off label use [Unknown]
  - Depressed mood [Unknown]

NARRATIVE: CASE EVENT DATE: 20191201
